FAERS Safety Report 5686041-5 (Version None)
Quarter: 2008Q1

REPORT INFORMATION
  Report Type: 
  Country: None (occurrence: None)
  Receive Date: 20080328
  Receipt Date: 20070816
  Transmission Date: 20080703
  Serious: Yes (Other)
  Sender: FDA-Public Use
  Company Number: US-BAYER-US-2007-028084

PATIENT
  Age: 25 Year
  Sex: Female
  Weight: 65 kg

DRUGS (3)
  1. MIRENA [Suspect]
     Indication: CONTRACEPTION
     Route: 015
     Dates: start: 20050630, end: 20070814
  2. NEXIUM /UNK/ [Concomitant]
  3. VITAMINS [Concomitant]

REACTIONS (3)
  - IUD MIGRATION [None]
  - MENSTRUATION IRREGULAR [None]
  - OVARIAN CYST [None]
